FAERS Safety Report 8181336-8 (Version None)
Quarter: 2012Q1

REPORT INFORMATION
  Report Type: 
  Country: None (occurrence: None)
  Receive Date: 20120302
  Receipt Date: 20120229
  Transmission Date: 20120608
  Serious: No
  Sender: FDA-Public Use
  Company Number: US-PFIZER INC-2012054368

PATIENT
  Sex: Female
  Weight: 53.515 kg

DRUGS (3)
  1. NEURONTIN [Suspect]
     Indication: FIBROMYALGIA
     Dosage: UNK
     Route: 048
     Dates: end: 19980101
  2. NEURONTIN [Suspect]
     Indication: SYSTEMIC LUPUS ERYTHEMATOSUS
  3. NEURONTIN [Suspect]
     Indication: NEURALGIA

REACTIONS (2)
  - NEURALGIA [None]
  - DRUG INEFFECTIVE [None]
